FAERS Safety Report 8467282 (Version 3)
Quarter: 2015Q1

REPORT INFORMATION
  Report Type: Report from Study
  Country: FR (occurrence: FR)
  Receive Date: 20120320
  Receipt Date: 20150309
  Transmission Date: 20150721
  Serious: Yes (Other)
  Sender: FDA-Public Use
  Company Number: FR-BRISTOL-MYERS SQUIBB COMPANY-16270266

PATIENT
  Age: 48 Year
  Sex: Female
  Weight: 85 kg

DRUGS (1)
  1. DASATINIB [Suspect]
     Active Substance: DASATINIB
     Indication: CHRONIC MYELOID LEUKAEMIA
     Dosage: 1 DF, QD
     Route: 065
     Dates: start: 20100307

REACTIONS (2)
  - Pleural effusion [Recovering/Resolving]
  - Chylothorax [Not Recovered/Not Resolved]

NARRATIVE: CASE EVENT DATE: 20111129
